FAERS Safety Report 8634541 (Version 4)
Quarter: 2012Q4

REPORT INFORMATION
  Report Type: 
  Country: CA (occurrence: CA)
  Receive Date: 20120626
  Receipt Date: 20121012
  Transmission Date: 20130627
  Serious: Yes (Death, Life-Threatening, Hospitalization, Other)
  Sender: FDA-Public Use
  Company Number: PHHY2012CA053984

PATIENT
  Sex: Male

DRUGS (4)
  1. EXJADE [Suspect]
     Indication: ACUTE LEUKAEMIA
     Dosage: 1500 mg, daily
     Route: 048
     Dates: start: 20120212
  2. EXJADE [Suspect]
     Indication: IRON OVERLOAD
  3. HYDREA [Concomitant]
  4. CHEMOTHERAPEUTICS [Concomitant]

REACTIONS (6)
  - Acute leukaemia [Fatal]
  - Leukaemia recurrent [Not Recovered/Not Resolved]
  - Jaundice [Unknown]
  - Metastases to liver [Unknown]
  - Metastases to pancreas [Unknown]
  - Diarrhoea [Unknown]
